FAERS Safety Report 7994501-7 (Version None)
Quarter: 2011Q4

REPORT INFORMATION
  Report Type: 
  Country: None (occurrence: None)
  Receive Date: 20111220
  Receipt Date: 20111209
  Transmission Date: 20120403
  Serious: Yes (Hospitalization)
  Sender: FDA-Public Use
  Company Number: US-BAXTER-2011BH037513

PATIENT
  Age: 81 Year
  Sex: Male

DRUGS (2)
  1. DIANEAL [Suspect]
     Indication: PERITONEAL DIALYSIS
     Route: 033
     Dates: start: 20100630, end: 20111017
  2. DIANEAL [Suspect]
     Route: 033
     Dates: start: 20111205

REACTIONS (1)
  - UMBILICAL HERNIA, OBSTRUCTIVE [None]
